FAERS Safety Report 16719067 (Version 1)
Quarter: 2019Q3

REPORT INFORMATION
  Report Type: Spontaneous
  Country: DE (occurrence: DE)
  Receive Date: 20190820
  Receipt Date: 20190820
  Transmission Date: 20191005
  Serious: Yes (Hospitalization)
  Sender: FDA-Public Use
  Company Number: DE-SA-2019SA218969

PATIENT
  Age: 77 Year
  Sex: Male

DRUGS (11)
  1. METOPROLOL. [Concomitant]
     Active Substance: METOPROLOL
     Dosage: 47.5 MG, 1-0-0
     Route: 048
  2. ONDANSETRON [Concomitant]
     Active Substance: ONDANSETRON
     Dosage: 8 MG, IF NECESSARY, TABLET
     Route: 048
  3. ZOLEDRONIC ACID [Concomitant]
     Active Substance: ZOLEDRONIC ACID
     Dosage: EVERY 4 WEEKS, SOLUTION FOR INJECTION / INFUSION
     Route: 042
  4. BICALUTAMID [Concomitant]
     Active Substance: BICALUTAMIDE
     Dosage: 50 MG, 0-0-1,
     Route: 048
  5. ATORVASTATIN [Concomitant]
     Active Substance: ATORVASTATIN
     Dosage: 40 MG / DAY, 0-0-1, TABLETS
     Route: 048
  6. PANTOPRAZOL [PANTOPRAZOLE] [Concomitant]
     Active Substance: PANTOPRAZOLE
     Dosage: 40 MG, QD
     Route: 048
  7. BICALUTAMID [Concomitant]
     Active Substance: BICALUTAMIDE
     Dosage: UNK DF, UNK
     Route: 048
  8. PREDNISOLON [PREDNISOLONE] [Concomitant]
     Active Substance: PREDNISOLONE
     Dosage: 5 MG, BID
     Route: 048
  9. LEUPRORELIN [Concomitant]
     Active Substance: LEUPROLIDE ACETATE
     Dosage: INJECTION / INFUSION
     Route: 058
  10. DOCETAXEL. [Suspect]
     Active Substance: DOCETAXEL
     Dosage: EVERY 22 DAYS, SOLUTION FOR INJECTION / INFUSION
     Route: 042
  11. ENALAPRIL [Concomitant]
     Active Substance: ENALAPRIL
     Dosage: 5 MG, 1/2-0-0,
     Route: 048

REACTIONS (5)
  - General physical health deterioration [Unknown]
  - Pain [Unknown]
  - Vomiting [Unknown]
  - Nausea [Unknown]
  - Abdominal discomfort [Unknown]
